FAERS Safety Report 6981791-2 (Version None)
Quarter: 2010Q3

REPORT INFORMATION
  Report Type: 
  Country: None (occurrence: None)
  Receive Date: 20100914
  Receipt Date: 20090918
  Transmission Date: 20110219
  Serious: No
  Sender: FDA-Public Use
  Company Number: US-PFIZER INC-2009272968

PATIENT
  Sex: Female
  Weight: 52.6 kg

DRUGS (3)
  1. LYRICA [Suspect]
     Indication: FIBROMYALGIA
     Dosage: 75 MG, 1X/DAY
     Dates: start: 20090825, end: 20090917
  2. LORAZEPAM [Concomitant]
     Dosage: 1.5-2 MG DAILY
  3. LUNESTA [Concomitant]

REACTIONS (1)
  - CONSTIPATION [None]
